FAERS Safety Report 23643571 (Version 2)
Quarter: 2024Q1

REPORT INFORMATION
  Report Type: Spontaneous
  Country: CN (occurrence: CN)
  Receive Date: 20240318
  Receipt Date: 20240326
  Transmission Date: 20240410
  Serious: Yes (Other)
  Sender: FDA-Public Use
  Company Number: CN-MYLANLABS-2024M1023676

PATIENT
  Age: 85 Year
  Sex: Male
  Weight: 65 kg

DRUGS (11)
  1. LYRICA [Suspect]
     Active Substance: PREGABALIN
     Indication: Neck pain
     Dosage: 1 DOSAGE FORM, QD (QN PO)
     Route: 048
     Dates: start: 20240202, end: 20240204
  2. TRAMADOL HYDROCHLORIDE [Suspect]
     Active Substance: TRAMADOL HYDROCHLORIDE
     Indication: Neck pain
     Dosage: 1 DOSAGE FORM, BID (PO Q12H)
     Route: 048
     Dates: start: 20240203, end: 20240203
  3. IMRECOXIB [Suspect]
     Active Substance: IMRECOXIB
     Indication: Neck pain
     Dosage: 1 DOSAGE FORM, BID (BID PO)
     Route: 048
     Dates: start: 20240201, end: 20240202
  4. BACLOFEN [Concomitant]
     Active Substance: BACLOFEN
     Indication: Muscle spasms
     Dosage: 0.5 DOSAGE FORM, TID (TID PO)
     Route: 048
     Dates: start: 20240202, end: 20240208
  5. SODIUM CHLORIDE [Concomitant]
     Active Substance: SODIUM CHLORIDE
     Dosage: 250 MILLILITER, QD
     Route: 042
     Dates: start: 20240201, end: 20240208
  6. PANTOPRAZOLE SODIUM [Concomitant]
     Active Substance: PANTOPRAZOLE SODIUM
     Indication: Prophylaxis
     Dosage: 2 DOSAGE FORM, (QD PO)
     Route: 048
     Dates: start: 20240201, end: 20240208
  7. METHYLCOBALAMIN [Concomitant]
     Active Substance: METHYLCOBALAMIN
     Indication: Nerve conduction studies
     Dosage: 1 DOSAGE FORM, TID (TID PO)
     Route: 048
     Dates: start: 20240201, end: 20240206
  8. EPERISONE HYDROCHLORIDE [Concomitant]
     Active Substance: EPERISONE HYDROCHLORIDE
     Indication: Myelopathy
     Dosage: 1 DOSAGE FORM, TID (TID PO)
     Route: 048
     Dates: start: 20240201, end: 20240202
  9. CLOPIDOGREL BISULFATE [Concomitant]
     Active Substance: CLOPIDOGREL BISULFATE
     Indication: Platelet disorder
     Dosage: 1 DOSAGE FORM, QD (QD PO)
     Route: 048
     Dates: start: 20240201, end: 20240208
  10. DEXTROSE [Concomitant]
     Active Substance: DEXTROSE\DEXTROSE MONOHYDRATE
     Dosage: 250 MILLILITER, QD
     Route: 042
     Dates: start: 20240201, end: 20240208
  11. ATORVASTATIN CALCIUM [Concomitant]
     Active Substance: ATORVASTATIN CALCIUM
     Indication: Hyperlipidaemia
     Dosage: 1 DOSAGE FORM, QD (QN PO)
     Route: 048
     Dates: start: 20240201, end: 20240205

REACTIONS (3)
  - Confusional state [Recovering/Resolving]
  - Tremor [Recovering/Resolving]
  - Decreased appetite [Recovering/Resolving]

NARRATIVE: CASE EVENT DATE: 20240203
